FAERS Safety Report 26213371 (Version 1)
Quarter: 2025Q4

REPORT INFORMATION
  Report Type: Spontaneous
  Country: US (occurrence: US)
  Receive Date: 20251230
  Receipt Date: 20251230
  Transmission Date: 20260117
  Serious: Yes (Other)
  Sender: INCYTE
  Company Number: US-INCYTE CORPORATION-2025IN014384

PATIENT

DRUGS (2)
  1. JAKAFI [Suspect]
     Active Substance: RUXOLITINIB
     Indication: Acute myeloid leukaemia
     Dosage: 10 MILLIGRAM, BID
     Route: 061
  2. JAKAFI [Suspect]
     Active Substance: RUXOLITINIB
     Indication: Acute myelomonocytic leukaemia

REACTIONS (4)
  - Neuropathy peripheral [Unknown]
  - Oedema [Unknown]
  - Activities of daily living decreased [Unknown]
  - Off label use [Unknown]
